FAERS Safety Report 8180933-3 (Version None)
Quarter: 2012Q1

REPORT INFORMATION
  Report Type: 
  Country: None (occurrence: None)
  Receive Date: 20120229
  Receipt Date: 20120214
  Transmission Date: 20120608
  Serious: Yes (Death, Other)
  Sender: FDA-Public Use
  Company Number: FK201200436

PATIENT
  Age: 83 Year

DRUGS (2)
  1. FOLIC ACID [Concomitant]
  2. METHOTREXATE [Suspect]
     Indication: PEMPHIGOID

REACTIONS (12)
  - GASTROINTESTINAL TOXICITY [None]
  - HEPATOTOXICITY [None]
  - PANCYTOPENIA [None]
  - GASTROINTESTINAL HAEMORRHAGE [None]
  - RESPIRATORY TRACT INFECTION [None]
  - HAEMATOTOXICITY [None]
  - CYTOLYTIC HEPATITIS [None]
  - MYOCARDIAL INFARCTION [None]
  - ASTHENIA [None]
  - MOUTH ULCERATION [None]
  - PULMONARY TOXICITY [None]
  - INTESTINAL ULCER [None]
